FAERS Safety Report 15888824 (Version 1)
Quarter: 2019Q1

REPORT INFORMATION
  Report Type: Spontaneous
  Country: NL (occurrence: NL)
  Receive Date: 20190130
  Receipt Date: 20190130
  Transmission Date: 20190417
  Serious: Yes (Other)
  Sender: FDA-Public Use
  Company Number: NL-TELIGENT, INC-IGIL20190033

PATIENT
  Age: 50 Year
  Sex: Male

DRUGS (2)
  1. BETAMETHASONE DIPROPIONATE. [Suspect]
     Active Substance: BETAMETHASONE DIPROPIONATE
     Indication: DERMATITIS ATOPIC
     Dosage: WITH A MEAN OF 150 GRAMS PER WEEK
     Route: 061
  2. FLUOXETINE [Interacting]
     Active Substance: FLUOXETINE HYDROCHLORIDE
     Indication: PANIC ATTACK
     Dosage: 40 MG
     Route: 065

REACTIONS (10)
  - Fatigue [Recovered/Resolved]
  - Hypothalamic pituitary adrenal axis suppression [Recovered/Resolved]
  - Drug interaction [Unknown]
  - Arthralgia [Recovered/Resolved]
  - Incorrect dose administered [None]
  - Adrenal insufficiency [Recovered/Resolved]
  - Myalgia [Recovered/Resolved]
  - Influenza like illness [Recovered/Resolved]
  - Decreased appetite [Recovered/Resolved]
  - Dizziness [Recovered/Resolved]
